FAERS Safety Report 17139587 (Version 1)
Quarter: 2019Q4

REPORT INFORMATION
  Report Type: Spontaneous
  Country: GB (occurrence: GB)
  Receive Date: 20191211
  Receipt Date: 20191211
  Transmission Date: 20200122
  Serious: Yes (Other)
  Sender: FDA-Public Use
  Company Number: GB-ROCHE-2487479

PATIENT
  Age: 84 Year
  Sex: Male

DRUGS (6)
  1. LANSOPRAZOLE. [Concomitant]
     Active Substance: LANSOPRAZOLE
  2. BIOTIN [Concomitant]
     Active Substance: BIOTIN
  3. APIXABAN [Concomitant]
     Active Substance: APIXABAN
     Route: 065
  4. PIRFENIDONE. [Suspect]
     Active Substance: PIRFENIDONE
     Indication: IDIOPATHIC PULMONARY FIBROSIS
     Dosage: GRADUALLY TITRATED
     Route: 065
     Dates: start: 201901
  5. SIMVASTATIN. [Concomitant]
     Active Substance: SIMVASTATIN
  6. ABIDEC [Concomitant]

REACTIONS (7)
  - Hot flush [Unknown]
  - Monocytosis [Unknown]
  - Abnormal loss of weight [Unknown]
  - Decreased appetite [Unknown]
  - Nausea [Unknown]
  - Lethargy [Unknown]
  - Neutropenia [Recovered/Resolved]

NARRATIVE: CASE EVENT DATE: 201903
